FAERS Safety Report 6366464-1 (Version None)
Quarter: 2009Q3

REPORT INFORMATION
  Report Type: 
  Country: None (occurrence: None)
  Receive Date: 20090921
  Receipt Date: 20090916
  Transmission Date: 20100115
  Serious: Yes (Hospitalization)
  Sender: FDA-Public Use
  Company Number: US-ELI_LILLY_AND_COMPANY-US200909004270

PATIENT
  Sex: Female

DRUGS (1)
  1. HUMALOG [Suspect]
     Dates: start: 19870901

REACTIONS (2)
  - DRUG EXPOSURE DURING PREGNANCY [None]
  - PAROTID GLAND INFLAMMATION [None]
